FAERS Safety Report 18130926 (Version 2)
Quarter: 2020Q4

REPORT INFORMATION
  Report Type: Report from Study
  Country: US (occurrence: US)
  Receive Date: 20200810
  Receipt Date: 20201228
  Transmission Date: 20210113
  Serious: Yes (Hospitalization)
  Sender: FDA-Public Use
  Company Number: US-PFIZER INC-2020299265

PATIENT
  Age: 9 Year
  Sex: Female
  Weight: 29.9 kg

DRUGS (5)
  1. CYCLOPHOSPHAMIDE. [Suspect]
     Active Substance: CYCLOPHOSPHAMIDE
     Indication: ALVEOLAR RHABDOMYOSARCOMA
     Dosage: 1200 MG/M2, CYCLIC (IV OVER 60 MINUTES ON DAY 1 OF CYCLES 1 AND 3)
     Route: 042
     Dates: start: 20200616
  2. TEMSIROLIMUS. [Suspect]
     Active Substance: TEMSIROLIMUS
     Indication: ALVEOLAR RHABDOMYOSARCOMA
     Dosage: 15 MG/M2, CYCLIC ( IV OVER 30-60 MINUTES ON DAYS 1, 8, AND 15)
     Route: 042
     Dates: start: 20200616
  3. DACTINOMYCIN [Suspect]
     Active Substance: DACTINOMYCIN
     Indication: ALVEOLAR RHABDOMYOSARCOMA
     Dosage: 0.05 MG/KG, CYCLIC (IV OVER 1-5 MINUTES ON DAY 1 OF CYCLES 1 AND 3)
     Route: 042
     Dates: start: 20200616
  4. CAMPTOSAR [Suspect]
     Active Substance: IRINOTECAN HYDROCHLORIDE
     Indication: ALVEOLAR RHABDOMYOSARCOMA
     Dosage: 50 MG/M2, CYCLIC ( IV OVER 90 MINUTES ON DAYS 1-5 OF CYCLES 2 AND 4)
     Route: 042
     Dates: start: 20200616
  5. VINCRISTINE SULFATE. [Suspect]
     Active Substance: VINCRISTINE SULFATE
     Indication: ALVEOLAR RHABDOMYOSARCOMA
     Dosage: 1.5 MG/M2, CYCLIC ( IV OVER 1 MINUTE OR INFUSION VIA MINIBAG ON DAYS 1, 8, AND 15)
     Route: 042
     Dates: start: 20200616

REACTIONS (3)
  - Diarrhoea [Not Recovered/Not Resolved]
  - Dehydration [Not Recovered/Not Resolved]
  - Vomiting [Not Recovered/Not Resolved]

NARRATIVE: CASE EVENT DATE: 20200728
